FAERS Safety Report 16143759 (Version 1)
Quarter: 2019Q2

REPORT INFORMATION
  Report Type: Spontaneous
  Country: TR (occurrence: TR)
  Receive Date: 20190401
  Receipt Date: 20190401
  Transmission Date: 20190711
  Serious: Yes (Other)
  Sender: FDA-Public Use
  Company Number: TR-AKORN PHARMACEUTICALS-2019AKN00584

PATIENT
  Age: 30 Year
  Sex: Female

DRUGS (1)
  1. TRIAMCINOLONE ACETONIDE. [Suspect]
     Active Substance: TRIAMCINOLONE ACETONIDE
     Indication: ALOPECIA AREATA
     Dosage: 10 MG, 1X/MONTH
     Route: 065

REACTIONS (4)
  - Blindness [Recovering/Resolving]
  - Retinal haemorrhage [Recovered/Resolved]
  - Retinal degeneration [Unknown]
  - Retinal artery embolism [Recovering/Resolving]
